FAERS Safety Report 11878148 (Version 1)
Quarter: 2015Q4

REPORT INFORMATION
  Report Type: Spontaneous
  Country: US (occurrence: US)
  Receive Date: 20151230
  Receipt Date: 20151230
  Transmission Date: 20160305
  Serious: No
  Sender: FDA-Public Use
  Company Number: US-BAYER-2015-494260

PATIENT
  Sex: Male

DRUGS (1)
  1. MIRALAX [Suspect]
     Active Substance: POLYETHYLENE GLYCOL 3350
     Dosage: 1 DF, QD
     Route: 048
     Dates: start: 201511

REACTIONS (6)
  - Abdominal distension [None]
  - Drug ineffective [None]
  - Product use issue [None]
  - Off label use [None]
  - Muscle spasms [None]
  - Product use issue [None]

NARRATIVE: CASE EVENT DATE: 2015
